FAERS Safety Report 4801137-5 (Version None)
Quarter: 2005Q4

REPORT INFORMATION
  Report Type: 
  Country: None (occurrence: None)
  Receive Date: 20051017
  Receipt Date: 20051005
  Transmission Date: 20060501
  Serious: Yes (Hospitalization)
  Sender: FDA-Public Use
  Company Number: ES-BRISTOL-MYERS SQUIBB COMPANY-13133137

PATIENT
  Sex: Female

DRUGS (5)
  1. PRAVACHOL [Suspect]
     Dates: end: 20050701
  2. NORVASC [Concomitant]
     Dates: end: 20050101
  3. TRAMADOL [Concomitant]
  4. BRUFEN [Concomitant]
  5. CIPRAMIL [Concomitant]

REACTIONS (14)
  - ABDOMINAL PAIN [None]
  - BLOOD URINE PRESENT [None]
  - CONJUNCTIVAL HAEMORRHAGE [None]
  - EAR DISCOMFORT [None]
  - FATIGUE [None]
  - GASTROINTESTINAL HAEMORRHAGE [None]
  - HEADACHE [None]
  - HYPERHIDROSIS [None]
  - LYMPHADENOPATHY [None]
  - MYALGIA [None]
  - PAIN [None]
  - SWELLING FACE [None]
  - SYNCOPE [None]
  - VISUAL DISTURBANCE [None]
